FAERS Safety Report 13981346 (Version 1)
Quarter: 2017Q3

REPORT INFORMATION
  Report Type: Spontaneous
  Country: US (occurrence: US)
  Receive Date: 20170916
  Receipt Date: 20170916
  Transmission Date: 20171128
  Serious: Yes (Other)
  Sender: FDA-Public Use
  Company Number: None

PATIENT
  Age: 50 Year
  Sex: Female
  Weight: 78.3 kg

DRUGS (3)
  1. XGEVA [Suspect]
     Active Substance: DENOSUMAB
     Indication: METASTASES TO BONE
     Dosage: ?          OTHER FREQUENCY:SQ MONTHLY;?
     Route: 058
     Dates: start: 20131025, end: 20170328
  2. AFINITOR [Concomitant]
     Active Substance: EVEROLIMUS
  3. AROMASIN [Concomitant]
     Active Substance: EXEMESTANE

REACTIONS (1)
  - Osteonecrosis of jaw [None]

NARRATIVE: CASE EVENT DATE: 20160730
